FAERS Safety Report 25931603 (Version 2)
Quarter: 2025Q4

REPORT INFORMATION
  Report Type: Spontaneous
  Country: US (occurrence: US)
  Receive Date: 20251016
  Receipt Date: 20251118
  Transmission Date: 20260117
  Serious: Yes (Other)
  Sender: ELI LILLY AND COMPANY
  Company Number: US-ELI_LILLY_AND_COMPANY-US202510006816

PATIENT
  Age: 95 Year
  Sex: Female

DRUGS (1)
  1. BASAGLAR [Suspect]
     Active Substance: INSULIN GLARGINE
     Indication: Type 2 diabetes mellitus
     Dosage: 12 U, UNKNOWN
     Route: 065

REACTIONS (4)
  - Macular degeneration [Unknown]
  - Blindness unilateral [Unknown]
  - Memory impairment [Unknown]
  - Hypoacusis [Unknown]
